FAERS Safety Report 6880228-1 (Version None)
Quarter: 2010Q3

REPORT INFORMATION
  Report Type: 
  Country: None (occurrence: None)
  Receive Date: 20100728
  Receipt Date: 20100719
  Transmission Date: 20110219
  Serious: Yes (Hospitalization)
  Sender: FDA-Public Use
  Company Number: US-ASTRAZENECA-2010SE33475

PATIENT
  Sex: Female
  Weight: 57.2 kg

DRUGS (7)
  1. NEXIUM [Suspect]
     Indication: GASTROOESOPHAGEAL REFLUX DISEASE
     Route: 048
     Dates: end: 20100601
  2. NEXIUM [Suspect]
     Route: 048
     Dates: start: 20100601
  3. ARICEPT [Concomitant]
  4. NAMENDA [Concomitant]
  5. GAS-X [Concomitant]
  6. BOWEL SOFTENER [Concomitant]
     Indication: CONSTIPATION
  7. LACTULOSE [Concomitant]

REACTIONS (4)
  - CONSTIPATION [None]
  - HYPOTENSION [None]
  - OESOPHAGEAL HAEMORRHAGE [None]
  - SOMNOLENCE [None]
